FAERS Safety Report 8841883 (Version 1)
Quarter: 2012Q4

REPORT INFORMATION
  Report Type: 
  Country: US (occurrence: US)
  Receive Date: 20121016
  Receipt Date: 20121016
  Transmission Date: 20130627
  Serious: Yes (Death)
  Sender: FDA-Public Use
  Company Number: US-JNJFOC-20121007995

PATIENT

DRUGS (7)
  1. DOXORUBICIN [Suspect]
     Indication: HODGKIN^S DISEASE
     Dosage: four cycles (Group 1) or six cycles (Group 2)
     Route: 042
  2. BLEOMYCIN [Suspect]
     Indication: HODGKIN^S DISEASE
     Dosage: four cycles (Group 1) or six cycles (Group 2)
     Route: 065
  3. VINBLASTINE [Suspect]
     Indication: HODGKIN^S DISEASE
     Dosage: four cycles (Group 1) or six cycles (Group 2)
     Route: 065
  4. CYCLOPHOSPHAMIDE [Suspect]
     Indication: HODGKIN^S DISEASE
     Dosage: four cycles (Group 1) or six cycles (Group 2)
     Route: 065
  5. VINCRISTINE [Suspect]
     Indication: HODGKIN^S DISEASE
     Dosage: four cycles (Group 1) or six cycles (Group 2)
     Route: 065
  6. PROCARBAZINE [Suspect]
     Indication: HODGKIN^S DISEASE
     Dosage: four cycles (Group 1) or six cycles (Group 2)
     Route: 065
  7. PREDNISONE [Suspect]
     Indication: HODGKIN^S DISEASE
     Dosage: four cycles (Group 1) or six cycles (Group 2)
     Route: 065

REACTIONS (1)
  - Fungal sepsis [Fatal]
